FAERS Safety Report 20577462 (Version 4)
Quarter: 2024Q1

REPORT INFORMATION
  Report Type: Spontaneous
  Country: US (occurrence: US)
  Receive Date: 20220310
  Receipt Date: 20240115
  Transmission Date: 20240409
  Serious: Yes (Disabling, Other)
  Sender: FDA-Public Use
  Company Number: US-ORGANON-O2203USA000815

PATIENT
  Sex: Male

DRUGS (2)
  1. SINGULAIR [Suspect]
     Active Substance: MONTELUKAST SODIUM
     Indication: Respiratory disorder
     Dosage: 1 TAB ORAL BEDTIME X90 DAYS
     Route: 048
     Dates: start: 20180417
  2. SINGULAIR [Suspect]
     Active Substance: MONTELUKAST SODIUM
     Indication: Lung disorder
     Dosage: 10 MILLIGRAM, TAKE ONE AT BED TIME
     Route: 048
     Dates: start: 2002, end: 2020

REACTIONS (30)
  - Neuropsychological symptoms [Not Recovered/Not Resolved]
  - Sleep disorder [Not Recovered/Not Resolved]
  - Anxiety [Not Recovered/Not Resolved]
  - Suicidal ideation [Not Recovered/Not Resolved]
  - Renal failure [Not Recovered/Not Resolved]
  - Adverse event [Not Recovered/Not Resolved]
  - Depression [Not Recovered/Not Resolved]
  - Barrett^s oesophagus [Not Recovered/Not Resolved]
  - Insomnia [Unknown]
  - Weight increased [Unknown]
  - Frustration tolerance decreased [Unknown]
  - Anger [Not Recovered/Not Resolved]
  - Feelings of worthlessness [Not Recovered/Not Resolved]
  - Amnesia [Unknown]
  - Asocial behaviour [Unknown]
  - Dysania [Unknown]
  - Eating disorder [Unknown]
  - Post-traumatic stress disorder [Not Recovered/Not Resolved]
  - Back pain [Not Recovered/Not Resolved]
  - Pain in extremity [Not Recovered/Not Resolved]
  - Paraesthesia [Not Recovered/Not Resolved]
  - Arthralgia [Not Recovered/Not Resolved]
  - Hypoaesthesia [Not Recovered/Not Resolved]
  - Arthralgia [Not Recovered/Not Resolved]
  - Cough [Not Recovered/Not Resolved]
  - Sleep apnoea syndrome [Not Recovered/Not Resolved]
  - Headache [Not Recovered/Not Resolved]
  - Arthralgia [Not Recovered/Not Resolved]
  - Pain in extremity [Not Recovered/Not Resolved]
  - Stress [Not Recovered/Not Resolved]
